FAERS Safety Report 7794494-1 (Version None)
Quarter: 2011Q4

REPORT INFORMATION
  Report Type: 
  Country: None (occurrence: None)
  Receive Date: 20111004
  Receipt Date: 20110922
  Transmission Date: 20120403
  Serious: Yes (Hospitalization)
  Sender: FDA-Public Use
  Company Number: SI-PFIZER INC-2011226895

PATIENT
  Age: 39 Year
  Sex: Female

DRUGS (4)
  1. TRIPTORELIN PAMOATE [Suspect]
     Indication: BREAST CANCER FEMALE
     Dosage: 3.75 MG, UNK
     Route: 030
     Dates: start: 20090825, end: 20110823
  2. EXEMESTANE [Suspect]
     Indication: BREAST CANCER FEMALE
     Dosage: 25 MG, UNK
     Route: 048
     Dates: start: 20091117
  3. CYCLOPHOSPHAMIDE [Concomitant]
     Indication: BREAST CANCER FEMALE
     Dosage: UNK
     Dates: start: 20090825
  4. EPIRUBICIN [Concomitant]
     Indication: BREAST CANCER FEMALE
     Dosage: UNK
     Dates: start: 20090825

REACTIONS (1)
  - ANKYLOSING SPONDYLITIS [None]
